FAERS Safety Report 19473090 (Version 1)
Quarter: 2021Q2

REPORT INFORMATION
  Report Type: Spontaneous
  Country: NL (occurrence: PL)
  Receive Date: 20210629
  Receipt Date: 20210629
  Transmission Date: 20210717
  Serious: Yes (Death, Hospitalization)
  Sender: FDA-Public Use
  Company Number: PL-FRESENIUS KABI-FK202106478

PATIENT
  Age: 64 Year
  Sex: Male
  Weight: 84 kg

DRUGS (2)
  1. PARACETAMOL (MANUFACTURER UNKNOWN) [Suspect]
     Active Substance: ACETAMINOPHEN
     Indication: BODY TEMPERATURE INCREASED
     Route: 065
     Dates: start: 20210403, end: 20210410
  2. VAXZEVRIA [Suspect]
     Active Substance: AZD-1222
     Indication: PRODUCT USED FOR UNKNOWN INDICATION
     Dosage: VAXZEVRIA
     Route: 065

REACTIONS (6)
  - Diarrhoea [Fatal]
  - COVID-19 pneumonia [Fatal]
  - Vomiting [Fatal]
  - Asthenia [Fatal]
  - Pyrexia [Fatal]
  - Thrombosis [Fatal]

NARRATIVE: CASE EVENT DATE: 20210403
